FAERS Safety Report 9386196 (Version 1)
Quarter: 2013Q3

REPORT INFORMATION
  Report Type: Spontaneous
  Country: SA (occurrence: SA)
  Receive Date: 20130708
  Receipt Date: 20130708
  Transmission Date: 20140515
  Serious: Yes (Hospitalization)
  Sender: FDA-Public Use
  Company Number: SA-AMGEN-SAUSP2013046999

PATIENT
  Age: 36 Year
  Sex: Male

DRUGS (4)
  1. FILGRASTIM [Suspect]
     Indication: PROPHYLAXIS
     Dosage: 300 MUG, ONCE DAILY FOR 5 DAYS
     Route: 058
  2. VINBLASTINE                        /00115802/ [Concomitant]
     Indication: SEMINOMA
     Dosage: UNK
  3. CISPLATIN [Concomitant]
     Indication: SEMINOMA
     Dosage: UNK
  4. IFOSFAMIDE [Concomitant]
     Indication: SEMINOMA
     Dosage: 300 MUG, 1 IN 1 D
     Route: 058

REACTIONS (1)
  - Febrile neutropenia [Not Recovered/Not Resolved]
